FAERS Safety Report 6088829-8 (Version None)
Quarter: 2009Q1

REPORT INFORMATION
  Report Type: 
  Country: None (occurrence: None)
  Receive Date: 20090224
  Receipt Date: 20090218
  Transmission Date: 20090719
  Serious: Yes (Other)
  Sender: FDA-Public Use
  Company Number: B0560901A

PATIENT
  Age: 23 Year
  Sex: Male

DRUGS (3)
  1. NIQUITIN [Suspect]
     Dosage: 21MG PER DAY
     Route: 062
     Dates: start: 20090213, end: 20090214
  2. LAMITRIN [Concomitant]
  3. TEGRETOL [Concomitant]

REACTIONS (1)
  - EPILEPSY [None]
